FAERS Safety Report 16611608 (Version 1)
Quarter: 2019Q3

REPORT INFORMATION
  Report Type: Spontaneous
  Country: US (occurrence: US)
  Receive Date: 20190607
  Receipt Date: 20190607
  Transmission Date: 20191004
  Serious: No
  Sender: FDA-Public Use
  Company Number: None

PATIENT
  Age: 74 Year
  Sex: Male
  Weight: 88.45 kg

DRUGS (16)
  1. CARDURA [Concomitant]
     Active Substance: DOXAZOSIN MESYLATE
  2. LOSARTAN POTASSIUM. [Concomitant]
     Active Substance: LOSARTAN POTASSIUM
  3. LIPITOR [Concomitant]
     Active Substance: ATORVASTATIN CALCIUM
  4. SOTALOL. [Concomitant]
     Active Substance: SOTALOL
  5. BRILINTA [Concomitant]
     Active Substance: TICAGRELOR
  6. COREG [Concomitant]
     Active Substance: CARVEDILOL
  7. LANTUS [Concomitant]
     Active Substance: INSULIN GLARGINE
  8. ELQUIST [Concomitant]
  9. PRESERVISION [Concomitant]
     Active Substance: MINERALS\VITAMINS
  10. GLUCOPHAGE [Concomitant]
     Active Substance: METFORMIN HYDROCHLORIDE
  11. HUMALOG [Concomitant]
     Active Substance: INSULIN LISPRO
  12. LUTEIN [Concomitant]
     Active Substance: LUTEIN
  13. VITAMIN B12 [Concomitant]
     Active Substance: CYANOCOBALAMIN
  14. SOTALOL. [Suspect]
     Active Substance: SOTALOL
     Indication: PRODUCT USED FOR UNKNOWN INDICATION
     Dosage: ?          QUANTITY:80 MG MILLIGRAM(S);?
     Route: 048
     Dates: start: 20190517, end: 20190530
  15. FINASTRIDE [Concomitant]
     Active Substance: FINASTERIDE
  16. COQ10 [Concomitant]
     Active Substance: UBIDECARENONE

REACTIONS (4)
  - Dyspnoea [None]
  - Diarrhoea [None]
  - Fatigue [None]
  - Dizziness [None]

NARRATIVE: CASE EVENT DATE: 20190517
